FAERS Safety Report 19035005 (Version 1)
Quarter: 2021Q1

REPORT INFORMATION
  Report Type: Report from Study
  Country: US (occurrence: US)
  Receive Date: 20210320
  Receipt Date: 20210320
  Transmission Date: 20210420
  Serious: Yes (Other)
  Sender: FDA-Public Use
  Company Number: NVSC2021US057644

PATIENT
  Age: 53 Year
  Sex: Male
  Weight: 84.6 kg

DRUGS (9)
  1. CARFILZOMIB [Suspect]
     Active Substance: CARFILZOMIB
     Dosage: 110 MG (DAYS 8,9,15,16)
     Route: 042
     Dates: start: 20201201, end: 20201207
  2. PANTOPRAZOLE [Concomitant]
     Active Substance: PANTOPRAZOLE
     Indication: PRODUCT USED FOR UNKNOWN INDICATION
     Dosage: 20 MG (1 IN 1 D)
     Route: 048
  3. ONDANSETRON [Concomitant]
     Active Substance: ONDANSETRON
     Indication: PRODUCT USED FOR UNKNOWN INDICATION
     Dosage: 12 MG, PRN
     Route: 048
  4. MAXIDEX [Suspect]
     Active Substance: DEXAMETHASONE
     Indication: PLASMA CELL MYELOMA
     Dosage: 20 MG, (DAY 1, 2)
     Route: 048
     Dates: start: 20201123
  5. ZOLPIDEM [Concomitant]
     Active Substance: ZOLPIDEM TARTRATE
     Indication: PRODUCT USED FOR UNKNOWN INDICATION
     Dosage: 5 MG, PRN
     Route: 048
     Dates: start: 20201130
  6. ACYCLOVIR. [Concomitant]
     Active Substance: ACYCLOVIR
     Indication: PRODUCT USED FOR UNKNOWN INDICATION
     Dosage: 800 MG (2 IN 1 D)
     Route: 048
  7. CARFILZOMIB [Suspect]
     Active Substance: CARFILZOMIB
     Indication: PLASMA CELL MYELOMA
     Dosage: 39 MG
     Route: 042
     Dates: start: 20201123
  8. MAXIDEX [Suspect]
     Active Substance: DEXAMETHASONE
     Dosage: 20 MG, QD (DAYS 8?9)
     Route: 065
     Dates: start: 20201201, end: 20201207
  9. DICLOFENAC [Concomitant]
     Active Substance: DICLOFENAC
     Indication: PRODUCT USED FOR UNKNOWN INDICATION
     Dosage: UNK (1 APP, 4 IN 1 D)
     Route: 065
     Dates: start: 20201130

REACTIONS (8)
  - Sinus tachycardia [Not Recovered/Not Resolved]
  - Dyspnoea [Recovered/Resolved]
  - Chest discomfort [Unknown]
  - Diarrhoea [Unknown]
  - Depressed mood [Unknown]
  - Dysphagia [Unknown]
  - Fatigue [Unknown]
  - Palpitations [Unknown]

NARRATIVE: CASE EVENT DATE: 20201203
